FAERS Safety Report 6203003-X (Version None)
Quarter: 2009Q2

REPORT INFORMATION
  Report Type: 
  Country: None (occurrence: None)
  Receive Date: 20090520
  Receipt Date: 20090507
  Transmission Date: 20091009
  Serious: Yes (Death)
  Sender: FDA-Public Use
  Company Number: 1000006115

PATIENT
  Age: 60 Year
  Sex: Female

DRUGS (6)
  1. MILNACIPRAN (MILNACIPRAN HYDROCHLORIDE) (TABLETS) [Suspect]
     Indication: DEPRESSION
     Dosage: 75 MG (25 MG, 3 IN 1 D), ORAL
     Route: 048
     Dates: start: 20041101
  2. ROSUVASTATIN CALCIUM [Concomitant]
  3. LANSOPRAZOLE [Concomitant]
  4. CANDESARTAN CILEXETIL [Concomitant]
  5. AMLODIPINE BESYLATE [Concomitant]
  6. MAGNESIUM OXIDE [Concomitant]

REACTIONS (3)
  - ABNORMAL BEHAVIOUR [None]
  - ANXIETY [None]
  - COMPLETED SUICIDE [None]
